FAERS Safety Report 5570686-7 (Version None)
Quarter: 2007Q4

REPORT INFORMATION
  Report Type: 
  Country: None (occurrence: None)
  Receive Date: 20071221
  Receipt Date: 20071217
  Transmission Date: 20080405
  Serious: Yes (Other)
  Sender: FDA-Public Use
  Company Number: JP-BAYER-200711044BYL

PATIENT
  Age: 96 Year
  Sex: Male

DRUGS (6)
  1. ASPIRIN [Suspect]
     Indication: MYOCARDIAL INFARCTION
     Route: 048
  2. FUROSEMIDE [Concomitant]
     Indication: CARDIAC FAILURE CONGESTIVE
  3. HEPARIN [Concomitant]
     Indication: CORONARY ARTERY OCCLUSION
     Route: 041
  4. ISOSORBIDE DINITRATE [Concomitant]
     Indication: CORONARY ARTERY OCCLUSION
     Route: 041
  5. ANTIBIOTIC PREPARATIONS [Concomitant]
     Indication: RESPIRATORY TRACT INFECTION
  6. ARBEKACIN SULFATE [Concomitant]
     Indication: STAPHYLOCOCCAL INFECTION

REACTIONS (2)
  - GASTRIC MUCOSAL LESION [None]
  - MELAENA [None]
